APPROVED DRUG PRODUCT: ELUXADOLINE
Active Ingredient: ELUXADOLINE
Strength: 100MG
Dosage Form/Route: TABLET;ORAL
Application: A213522 | Product #002
Applicant: ZYDUS PHARMACEUTICALS USA INC
Approved: Mar 14, 2025 | RLD: No | RS: No | Type: DISCN